FAERS Safety Report 17971851 (Version 3)
Quarter: 2020Q4

REPORT INFORMATION
  Report Type: Report from Study
  Country: None (occurrence: US)
  Receive Date: 20200702
  Receipt Date: 20201109
  Transmission Date: 20210113
  Serious: Yes (Hospitalization, Other)
  Sender: FDA-Public Use
  Company Number: US-ABBVIE-20K-163-3461067-00

PATIENT
  Age: 44 Year
  Sex: Female
  Weight: 77.18 kg

DRUGS (5)
  1. HUMIRA [Suspect]
     Active Substance: ADALIMUMAB
     Indication: CROHN^S DISEASE
     Route: 058
     Dates: start: 201712, end: 202004
  2. LOESTRIN 24 FE [Concomitant]
     Active Substance: ETHINYL ESTRADIOL\NORETHINDRONE ACETATE
     Indication: AFFECTIVE DISORDER
  3. MINOCYCLINE [Concomitant]
     Active Substance: MINOCYCLINE HYDROCHLORIDE
     Indication: ROSACEA
  4. HUMIRA [Suspect]
     Active Substance: ADALIMUMAB
     Route: 058
     Dates: start: 202004
  5. ESCITALOPRAM [Concomitant]
     Active Substance: ESCITALOPRAM OXALATE
     Indication: AFFECTIVE DISORDER

REACTIONS (9)
  - Joint dislocation [Recovering/Resolving]
  - Tibia fracture [Recovering/Resolving]
  - Dyspnoea [Recovered/Resolved]
  - General symptom [Recovered/Resolved]
  - Pain [Recovered/Resolved]
  - Confusional state [Recovered/Resolved]
  - Fibula fracture [Recovering/Resolving]
  - Pyrexia [Recovered/Resolved]
  - Fall [Recovered/Resolved]

NARRATIVE: CASE EVENT DATE: 2020
